FAERS Safety Report 9293040 (Version 1)
Quarter: 2013Q2

REPORT INFORMATION
  Report Type: Spontaneous
  Country: US (occurrence: None)
  Receive Date: 20130513
  Receipt Date: 20130513
  Transmission Date: 20140414
  Serious: Yes (Hospitalization)
  Sender: FDA-Public Use
  Company Number: 130142

PATIENT
  Age: 58 Year
  Sex: Female
  Weight: 65.77 kg

DRUGS (1)
  1. SUPREP BOWEL PREP KIT [Suspect]
     Indication: COLONOSCOPY
     Dosage: 1 X 6 OZ. OTTHE/1X/PO
     Route: 048
     Dates: start: 20130425

REACTIONS (8)
  - Nausea [None]
  - Dizziness [None]
  - Unresponsive to stimuli [None]
  - Feeling cold [None]
  - Disorientation [None]
  - Hyponatraemia [None]
  - Dementia [None]
  - Blood pressure decreased [None]
